FAERS Safety Report 22146130 (Version 1)
Quarter: 2023Q1

REPORT INFORMATION
  Report Type: Spontaneous
  Country: PT (occurrence: None)
  Receive Date: 20230328
  Receipt Date: 20230328
  Transmission Date: 20230417
  Serious: Yes (Death, Hospitalization)
  Sender: FDA-Public Use
  Company Number: PT-ROCHE-3316184

PATIENT
  Age: 89 Year
  Sex: Male

DRUGS (1)
  1. CAPECITABINE [Suspect]
     Active Substance: CAPECITABINE
     Indication: Rectal cancer
     Route: 048
     Dates: start: 20220105, end: 20230301

REACTIONS (1)
  - Anaemia macrocytic [Fatal]

NARRATIVE: CASE EVENT DATE: 20230303
